FAERS Safety Report 7951235-2 (Version None)
Quarter: 2011Q4

REPORT INFORMATION
  Report Type: 
  Country: None (occurrence: None)
  Receive Date: 20111201
  Receipt Date: 20111125
  Transmission Date: 20120403
  Serious: Yes (Hospitalization)
  Sender: FDA-Public Use
  Company Number: PHHY2011JP104033

PATIENT

DRUGS (1)
  1. EXELON [Suspect]
     Dosage: 4.5 MG, DAILY
     Route: 062

REACTIONS (1)
  - BLOOD PRESSURE DECREASED [None]
